FAERS Safety Report 12529851 (Version 1)
Quarter: 2016Q3

REPORT INFORMATION
  Report Type: Spontaneous
  Country: US (occurrence: None)
  Receive Date: 20160705
  Receipt Date: 20160705
  Transmission Date: 20161109
  Serious: No
  Sender: FDA-Public Use
  Company Number: None

PATIENT
  Age: 17 Year
  Sex: Female
  Weight: 68.04 kg

DRUGS (3)
  1. PROZAC [Concomitant]
     Active Substance: FLUOXETINE HYDROCHLORIDE
  2. JUNEL [Concomitant]
     Active Substance: ETHINYL ESTRADIOL\NORETHINDRONE ACETATE
  3. ICY HOT MEDICATED NO MESS APPLICATOR [Suspect]
     Active Substance: MENTHOL
     Indication: ARTHRALGIA
     Dosage: APPLIED TO A SURFACE, USUALLY THE SKIN
     Route: 061
     Dates: start: 20160701, end: 20160701

REACTIONS (4)
  - Skin burning sensation [None]
  - Thermal burn [None]
  - Joint swelling [None]
  - Pain [None]

NARRATIVE: CASE EVENT DATE: 20160701
